FAERS Safety Report 8693260 (Version 3)
Quarter: 2012Q4

REPORT INFORMATION
  Report Type: 
  Country: US (occurrence: US)
  Receive Date: 20120730
  Receipt Date: 20120829
  Transmission Date: 20130627
  Serious: Yes (Death)
  Sender: FDA-Public Use
  Company Number: US-PURDUE-USA-2012-0090475

PATIENT
  Age: 92 Year
  Sex: Female

DRUGS (1)
  1. BUTRANS [Suspect]
     Indication: PAIN
     Dosage: 5 mcg/hr, UNK
     Route: 062
     Dates: start: 20120608, end: 20120626

REACTIONS (3)
  - Death [Fatal]
  - Grief reaction [Unknown]
  - Depression [Unknown]
